FAERS Safety Report 10520339 (Version 2)
Quarter: 2014Q4

REPORT INFORMATION
  Report Type: Spontaneous
  Country: US (occurrence: US)
  Receive Date: 20141015
  Receipt Date: 20141015
  Transmission Date: 20150528
  Serious: No
  Sender: FDA-Public Use
  Company Number: US-GLAXOSMITHKLINE-A1088941A

PATIENT

DRUGS (2)
  1. TAFINLAR [Suspect]
     Active Substance: DABRAFENIB MESYLATE
     Indication: MALIGNANT MELANOMA
     Dosage: 150 MG TWICE DAILY
     Route: 048
     Dates: start: 20131023
  2. MEKINIST [Suspect]
     Active Substance: TRAMETINIB DIMETHYL SULFOXIDE
     Indication: MALIGNANT MELANOMA
     Dosage: 2MG
     Route: 048
     Dates: start: 20131023

REACTIONS (4)
  - Migraine with aura [Unknown]
  - Joint swelling [Unknown]
  - Drug dose omission [Unknown]
  - Arthralgia [Unknown]
